FAERS Safety Report 7942639-2 (Version None)
Quarter: 2011Q4

REPORT INFORMATION
  Report Type: 
  Country: None (occurrence: None)
  Receive Date: 20111128
  Receipt Date: 20111114
  Transmission Date: 20120403
  Serious: Yes (Hospitalization)
  Sender: FDA-Public Use
  Company Number: US-PFIZER INC-2011289284

PATIENT
  Sex: Female

DRUGS (4)
  1. ETANERCEPT [Concomitant]
     Indication: RHEUMATOID ARTHRITIS
     Dosage: 25 MG, 2 TIMES/WK
     Dates: start: 20030901
  2. FELDENE [Concomitant]
     Dosage: UNK
  3. METHYLPREDNISOLONE [Suspect]
     Dosage: UNK
  4. WATER [Concomitant]
     Dosage: UNK

REACTIONS (1)
  - OSTEOPOROSIS [None]
